FAERS Safety Report 5473592-1 (Version None)
Quarter: 2007Q3

REPORT INFORMATION
  Report Type: 
  Country: None (occurrence: None)
  Receive Date: 20070831
  Receipt Date: 20070625
  Transmission Date: 20080115
  Serious: No
  Sender: FDA-Public Use
  Company Number: 242446

PATIENT
  Age: 85 Year
  Sex: Female
  Weight: 53.5 kg

DRUGS (8)
  1. LUCENTIS [Suspect]
     Indication: MACULAR DEGENERATION
     Dosage: INTRAVITREAL
     Route: 050
     Dates: start: 20070201
  2. PRESERVISION NOS (VITAMINS AND MINERALS) [Concomitant]
  3. CALCIUM (CALCIUM NOS) [Concomitant]
  4. EVISTA [Concomitant]
  5. FOSAMAX [Concomitant]
  6. ASPIRIN [Concomitant]
  7. MAGNESIUM OXIDE [Concomitant]
  8. MULTIVITAMIN (MULTIVITAMINS NOS) [Concomitant]

REACTIONS (2)
  - BLOOD PRESSURE INCREASED [None]
  - SENSITIVITY OF TEETH [None]
